FAERS Safety Report 5040268-4 (Version None)
Quarter: 2006Q2

REPORT INFORMATION
  Report Type: 
  Country: None (occurrence: None)
  Receive Date: 20060630
  Receipt Date: 20060623
  Transmission Date: 20061013
  Serious: Yes (Hospitalization)
  Sender: FDA-Public Use
  Company Number: US-JNJFOC-20060605804

PATIENT
  Sex: Female
  Weight: 119.75 kg

DRUGS (6)
  1. EXTRA STRENGTH TYLENOL [Suspect]
     Route: 048
  2. EXTRA STRENGTH TYLENOL [Suspect]
     Indication: DRUG USE FOR UNKNOWN INDICATION
     Route: 048
  3. LORTAB [Suspect]
     Indication: PAIN MANAGEMENT
     Route: 048
  4. CHINESE FOOD [Suspect]
     Indication: DRUG USE FOR UNKNOWN INDICATION
  5. SB-0767905 (ALVIMOPAN) [Suspect]
     Indication: INTESTINAL FUNCTIONAL DISORDER
     Route: 048
  6. SETRALINE HCL [Concomitant]
     Indication: DRUG USE FOR UNKNOWN INDICATION

REACTIONS (2)
  - DRUG TOXICITY [None]
  - HEPATITIS [None]
